FAERS Safety Report 4954458-X (Version None)
Quarter: 2006Q1

REPORT INFORMATION
  Report Type: 
  Country: None (occurrence: None)
  Receive Date: 20060321
  Receipt Date: 20060306
  Transmission Date: 20060701
  Serious: Yes (Death)
  Sender: FDA-Public Use
  Company Number: 218043

PATIENT

DRUGS (5)
  1. MABTHERA(RITUXIMAB) CONC FOR SOLUTION FOR INFUSION [Suspect]
     Indication: DIFFUSE LARGE B-CELL LYMPHOMA
     Dosage: INTRAVENOUS
     Route: 042
     Dates: start: 20050601
  2. ETOPOSIDE [Suspect]
     Indication: DIFFUSE LARGE B-CELL LYMPHOMA
     Dates: end: 20051101
  3. METHYLPREDNISOLONE [Suspect]
     Indication: DIFFUSE LARGE B-CELL LYMPHOMA
     Dates: end: 20051101
  4. HIGH DOSE ARA-C (CYTARABINE HYDROCHLORIDE) [Suspect]
     Indication: DIFFUSE LARGE B-CELL LYMPHOMA
     Dates: end: 20051101
  5. CISPLATIN [Suspect]
     Indication: DIFFUSE LARGE B-CELL LYMPHOMA
     Dates: end: 20051101

REACTIONS (7)
  - ANAEMIA [None]
  - DIFFUSE LARGE B-CELL LYMPHOMA [None]
  - HEADACHE [None]
  - LEUKOPENIA [None]
  - MALIGNANT NEOPLASM PROGRESSION [None]
  - NEUTROPENIA [None]
  - THROMBOCYTOPENIA [None]
